FAERS Safety Report 6404387-X (Version None)
Quarter: 2009Q4

REPORT INFORMATION
  Report Type: 
  Country: None (occurrence: None)
  Receive Date: 20091016
  Receipt Date: 20091007
  Transmission Date: 20100525
  Serious: Yes (Other)
  Sender: FDA-Public Use
  Company Number: US-JNJFOC-20091001408

PATIENT
  Sex: Male

DRUGS (4)
  1. REMICADE [Suspect]
     Indication: DRUG EXPOSURE VIA BREAST MILK
     Dates: start: 20090601
  2. REMICADE [Suspect]
     Indication: DRUG EXPOSURE DURING PREGNANCY
     Dates: start: 20090601
  3. PREDNISONE [Concomitant]
     Indication: DRUG EXPOSURE VIA BREAST MILK
  4. PREDNISONE [Concomitant]
     Indication: DRUG EXPOSURE DURING PREGNANCY

REACTIONS (2)
  - BREAST FEEDING [None]
  - PREMATURE BABY [None]
